FAERS Safety Report 23867472 (Version 1)
Quarter: 2024Q2

REPORT INFORMATION
  Report Type: Other
  Country: US (occurrence: None)
  Receive Date: 20240517
  Receipt Date: 20240517
  Transmission Date: 20240715
  Serious: Yes (Other)
  Sender: FDA-Public Use
  Company Number: US-ROCHE-3333947

PATIENT
  Age: 66 Year
  Sex: Female

DRUGS (2)
  1. CELLCEPT [Suspect]
     Active Substance: MYCOPHENOLATE MOFETIL
     Indication: Overlap syndrome
     Dosage: 1500 MG BID
     Route: 065
  2. CELLCEPT [Suspect]
     Active Substance: MYCOPHENOLATE MOFETIL
     Indication: Connective tissue disorder
     Route: 048

REACTIONS (7)
  - Feeling abnormal [Unknown]
  - Off label use [Unknown]
  - Tracheomalacia [Unknown]
  - Pneumonia pneumococcal [Unknown]
  - Memory impairment [Unknown]
  - Pulmonary fibrosis [Unknown]
  - Aneurysm ruptured [Unknown]
